FAERS Safety Report 24874777 (Version 1)
Quarter: 2025Q1

REPORT INFORMATION
  Report Type: Spontaneous
  Country: US (occurrence: US)
  Receive Date: 20250122
  Receipt Date: 20250122
  Transmission Date: 20250408
  Serious: Yes (Death, Life-Threatening, Hospitalization, Other)
  Sender: JOHNSON AND JOHNSON
  Company Number: US-KENVUE-20250102515

PATIENT
  Age: 11 Year
  Sex: Female

DRUGS (6)
  1. ACETAMINOPHEN [Suspect]
     Active Substance: ACETAMINOPHEN
     Indication: Headache
  2. IBUPROFEN [Suspect]
     Active Substance: IBUPROFEN
     Indication: Headache
  3. WATER [Suspect]
     Active Substance: WATER
     Indication: Product used for unknown indication
  4. HYDROXYZINE [Suspect]
     Active Substance: HYDROXYZINE HYDROCHLORIDE
     Indication: Headache
  5. SERTRALINE [Suspect]
     Active Substance: SERTRALINE HYDROCHLORIDE
     Indication: Headache
  6. BUPROPION [Suspect]
     Active Substance: BUPROPION
     Indication: Headache

REACTIONS (19)
  - Toxicity to various agents [Fatal]
  - Medication error [Fatal]
  - Confusional state [Fatal]
  - Mydriasis [Fatal]
  - Seizure [Fatal]
  - Hallucination [Fatal]
  - Postictal state [Fatal]
  - Aggression [Fatal]
  - Vomiting [Fatal]
  - Hypoxia [Fatal]
  - Blood pressure decreased [Fatal]
  - Hyponatraemia [Fatal]
  - Pupil fixed [Fatal]
  - Intracranial pressure increased [Fatal]
  - Diabetes insipidus [Fatal]
  - Brain oedema [Fatal]
  - Brain herniation [Fatal]
  - Unresponsive to stimuli [Fatal]
  - Brain death [Fatal]
